FAERS Safety Report 6590278-0 (Version None)
Quarter: 2010Q1

REPORT INFORMATION
  Report Type: 
  Country: None (occurrence: None)
  Receive Date: 20100219
  Receipt Date: 20100209
  Transmission Date: 20100710
  Serious: Yes (Other)
  Sender: FDA-Public Use
  Company Number: PHHY2009CA56002

PATIENT
  Sex: Female

DRUGS (1)
  1. SANDOSTATIN LAR [Suspect]
     Indication: ACROMEGALY
     Dosage: 20 MG EVERY FOUR WEEKS
     Route: 030
     Dates: start: 20091119

REACTIONS (7)
  - BREAST MASS [None]
  - CHILLS [None]
  - DIARRHOEA [None]
  - GASTROINTESTINAL SOUNDS ABNORMAL [None]
  - HOT FLUSH [None]
  - HYPERHIDROSIS [None]
  - LABOUR PAIN [None]
